FAERS Safety Report 12346682 (Version 1)
Quarter: 2016Q2

REPORT INFORMATION
  Report Type: Spontaneous
  Country: US (occurrence: None)
  Receive Date: 20160506
  Receipt Date: 20160506
  Transmission Date: 20160815
  Serious: Yes (Other)
  Sender: FDA-Public Use
  Company Number: None

PATIENT
  Age: 66 Year
  Sex: Male

DRUGS (1)
  1. HUMIRA [Suspect]
     Active Substance: ADALIMUMAB
     Indication: ANKYLOSING SPONDYLITIS
     Dosage: 40MG EVERY 2 WEEKS SQ
     Route: 058
     Dates: start: 20140624

REACTIONS (3)
  - Cystitis noninfective [None]
  - Cystitis [None]
  - Drug ineffective [None]

NARRATIVE: CASE EVENT DATE: 20160427
